FAERS Safety Report 13698873 (Version 4)
Quarter: 2017Q3

REPORT INFORMATION
  Report Type: Spontaneous
  Country: GB (occurrence: GB)
  Receive Date: 20170628
  Receipt Date: 20170809
  Transmission Date: 20171127
  Serious: Yes (Hospitalization, Other)
  Sender: FDA-Public Use
  Company Number: GB-BAYER-2017-123740

PATIENT
  Age: 50 Year
  Sex: Female

DRUGS (1)
  1. MIRENA [Suspect]
     Active Substance: LEVONORGESTREL
     Indication: MENORRHAGIA
     Dosage: 20 MCG/24HR, CONT
     Route: 015
     Dates: start: 20170605

REACTIONS (16)
  - Decreased appetite [Recovered/Resolved]
  - Disorientation [Recovered/Resolved]
  - Scar [None]
  - Genital infection female [Recovered/Resolved]
  - Dizziness [Recovered/Resolved]
  - Headache [Recovered/Resolved]
  - Abdominal pain lower [Recovered/Resolved]
  - Loss of consciousness [None]
  - Vaginal discharge [Recovered/Resolved]
  - Device dislocation [Recovered/Resolved]
  - Device issue [Recovered/Resolved]
  - Influenza like illness [Recovered/Resolved]
  - Nausea [Recovered/Resolved]
  - Abdominal tenderness [Recovered/Resolved]
  - Procedural pain [None]
  - Device use issue [None]

NARRATIVE: CASE EVENT DATE: 20170610
